FAERS Safety Report 5355069-7 (Version None)
Quarter: 2007Q2

REPORT INFORMATION
  Report Type: 
  Country: None (occurrence: None)
  Receive Date: 20070531
  Receipt Date: 20060605
  Transmission Date: 20071010
  Serious: Yes (Life-Threatening)
  Sender: FDA-Public Use
  Company Number: APP200600152

PATIENT
  Age: 41 Year
  Sex: Male
  Weight: 124.7392 kg

DRUGS (1)
  1. PROTAMINE SULFATE [Suspect]
     Dosage: 20 MG (20 MG,ONCE) ,INTRAVENOUS
     Route: 042
     Dates: start: 20060605, end: 20060605

REACTIONS (1)
  - CARDIO-RESPIRATORY ARREST [None]
